FAERS Safety Report 22382622 (Version 1)
Quarter: 2023Q2

REPORT INFORMATION
  Report Type: Report from Study
  Country: HN (occurrence: HN)
  Receive Date: 20230530
  Receipt Date: 20230530
  Transmission Date: 20230722
  Serious: Yes (Other)
  Sender: FDA-Public Use
  Company Number: HN-MYLANLABS-2023M1055223

PATIENT
  Sex: Male
  Weight: 58.96 kg

DRUGS (1)
  1. LIPITOR [Suspect]
     Active Substance: ATORVASTATIN CALCIUM
     Indication: Coronary artery disease
     Dosage: 1 DOSAGE FORM, QD
     Route: 048
     Dates: start: 20230219

REACTIONS (1)
  - Coronary artery disease [Unknown]
